FAERS Safety Report 9217004 (Version 1)
Quarter: 2013Q2

REPORT INFORMATION
  Report Type: Spontaneous
  Country: US (occurrence: US)
  Receive Date: 20130408
  Receipt Date: 20130408
  Transmission Date: 20140414
  Serious: No
  Sender: FDA-Public Use
  Company Number: US-PFIZER INC-2013107438

PATIENT
  Age: 74 Year
  Sex: Male
  Weight: 67.1 kg

DRUGS (7)
  1. LYRICA [Suspect]
     Indication: NEURALGIA
     Dosage: 75 MG, 2X/DAY
     Route: 048
     Dates: start: 201303, end: 20130329
  2. LYRICA [Suspect]
     Dosage: 100 MG, 3X/DAY
     Route: 048
     Dates: start: 20130330
  3. EFFIENT [Concomitant]
     Dosage: 10 MG, UNK
  4. ASPIRIN [Concomitant]
     Dosage: 81 MG, UNK
  5. COREG CR [Concomitant]
     Dosage: 40 MG, UNK
  6. AVAPRO [Concomitant]
     Dosage: 75 MG, UNK
  7. CRESTOR [Concomitant]
     Dosage: 20 MG, UNK

REACTIONS (1)
  - Drug ineffective [Unknown]
